FAERS Safety Report 15300934 (Version 1)
Quarter: 2018Q3

REPORT INFORMATION
  Report Type: Spontaneous
  Country: US (occurrence: US)
  Receive Date: 20180809
  Receipt Date: 20180809
  Transmission Date: 20181010
  Serious: Yes (Other)
  Sender: FDA-Public Use
  Company Number: None

PATIENT
  Age: 38 Year
  Sex: Female
  Weight: 71.1 kg

DRUGS (1)
  1. METRONIDAZOLE 500MG TABLETS [Suspect]
     Active Substance: METRONIDAZOLE
     Indication: BACTERIAL INFECTION
     Dosage: ?          QUANTITY:1 TABLET(S);?
     Route: 048
     Dates: start: 20180806, end: 20180807

REACTIONS (13)
  - Eye pain [None]
  - Vertigo [None]
  - Neck pain [None]
  - Confusional state [None]
  - Muscle spasms [None]
  - Dizziness [None]
  - Dysarthria [None]
  - Oropharyngeal pain [None]
  - Headache [None]
  - Nausea [None]
  - Musculoskeletal stiffness [None]
  - Therapy cessation [None]
  - Abdominal pain [None]

NARRATIVE: CASE EVENT DATE: 20180808
